FAERS Safety Report 8772390 (Version 2)
Quarter: 2012Q4

REPORT INFORMATION
  Report Type: 
  Country: SG (occurrence: SG)
  Receive Date: 20120905
  Receipt Date: 20120905
  Transmission Date: 20130627
  Serious: Yes (Hospitalization)
  Sender: FDA-Public Use
  Company Number: PHHY2012SG065357

PATIENT
  Age: 70 Year
  Sex: Female

DRUGS (4)
  1. GLIVEC [Suspect]
     Indication: CHRONIC MYELOID LEUKAEMIA
     Dosage: 400 mg, daily
     Dates: start: 20030915, end: 20120713
  2. FLUVOXAMINE [Concomitant]
     Dosage: 50 mg, UNK
     Route: 048
  3. RISPERIDONE [Concomitant]
     Dosage: 1 mg, UNK
     Route: 048
  4. FLUPENTIXOL DECANOATE [Concomitant]
     Dosage: 20 mg/ml, UNK

REACTIONS (2)
  - Myositis [Unknown]
  - Pleural effusion [Recovered/Resolved]
